FAERS Safety Report 4493310-3 (Version None)
Quarter: 2004Q4

REPORT INFORMATION
  Report Type: 
  Country: None (occurrence: None)
  Receive Date: 20041102
  Receipt Date: 20041019
  Transmission Date: 20050328
  Serious: Yes (Other)
  Sender: FDA-Public Use
  Company Number: USA041081823

PATIENT
  Age: 65 Year
  Sex: Female

DRUGS (15)
  1. CYMBALTA [Suspect]
     Indication: DEPRESSION
     Dosage: 20 MG DAY
     Dates: start: 20041008, end: 20041022
  2. NORVASC [Concomitant]
  3. LASIX [Concomitant]
  4. LEXAPRO [Concomitant]
  5. NOVOLIN 70/30 [Concomitant]
  6. ASPIRIN [Concomitant]
  7. POTASSIUM CHLORIDE [Concomitant]
  8. ALTACE [Concomitant]
  9. COLACE (DOCUSATE SODIUM) [Concomitant]
  10. SINEMET [Concomitant]
  11. ARICEPT [Concomitant]
  12. VITAMIN B12 FOR INJECTION (CYANOCOBALAMIN) [Concomitant]
  13. REGULAR INSULIN [Concomitant]
  14. TYLENOL [Concomitant]
  15. DULCOLAX [Concomitant]

REACTIONS (6)
  - BLOOD PRESSURE INCREASED [None]
  - CONVULSION [None]
  - DYSKINESIA [None]
  - GLYCOSYLATED HAEMOGLOBIN INCREASED [None]
  - INCONTINENCE [None]
  - LOSS OF CONSCIOUSNESS [None]
